FAERS Safety Report 7313329-4 (Version None)
Quarter: 2011Q1

REPORT INFORMATION
  Report Type: 
  Country: None (occurrence: None)
  Receive Date: 20110225
  Receipt Date: 20101217
  Transmission Date: 20110831
  Serious: No
  Sender: FDA-Public Use
  Company Number: US-MYLANLABS-2010S1023323

PATIENT
  Age: 76 Year
  Sex: Female

DRUGS (9)
  1. ZOLPIDEM [Concomitant]
  2. GEMFIBROZIL [Concomitant]
     Indication: BLOOD CHOLESTEROL
  3. METFORMIN HCL [Suspect]
     Indication: BLOOD GLUCOSE
     Route: 048
     Dates: start: 20101215, end: 20101217
  4. LISINOPRIL [Concomitant]
     Indication: BLOOD PRESSURE
  5. LEVOTHYROXINE [Concomitant]
     Indication: THYROID DISORDER
  6. IRON [Concomitant]
  7. PROTONIX [Concomitant]
  8. ACTOS [Concomitant]
     Indication: BLOOD GLUCOSE
  9. M.V.I. [Concomitant]

REACTIONS (2)
  - BLOOD GLUCOSE INCREASED [None]
  - DRUG INEFFECTIVE [None]
